FAERS Safety Report 5891375-5 (Version None)
Quarter: 2008Q3

REPORT INFORMATION
  Report Type: 
  Country: None (occurrence: None)
  Receive Date: 20080922
  Receipt Date: 20080916
  Transmission Date: 20090109
  Serious: Yes (Death, Hospitalization, Disabling, Other)
  Sender: FDA-Public Use
  Company Number: PHHO2008IT10558

PATIENT
  Sex: Female
  Weight: 50 kg

DRUGS (1)
  1. TASIGNA [Suspect]
     Indication: CHRONIC MYELOID LEUKAEMIA
     Dosage: 400 MG
     Dates: start: 20080621, end: 20080912

REACTIONS (6)
  - ANAEMIA [None]
  - CHRONIC MYELOID LEUKAEMIA [None]
  - FEBRILE NEUTROPENIA [None]
  - LEUKOCYTOSIS [None]
  - PANCYTOPENIA [None]
  - THROMBOCYTOPENIA [None]
